FAERS Safety Report 23880149 (Version 1)
Quarter: 2024Q2

REPORT INFORMATION
  Report Type: Spontaneous
  Country: US (occurrence: US)
  Receive Date: 20240521
  Receipt Date: 20240521
  Transmission Date: 20240716
  Serious: No
  Sender: FDA-Public Use
  Company Number: US-GALDERMA-US2024007312

PATIENT

DRUGS (12)
  1. PROACTIV MD ADAPALENE ACNE TREATMENT [Suspect]
     Active Substance: ADAPALENE
     Indication: Acne
     Dosage: 1 DOSAGE FORM, QD
     Route: 061
     Dates: start: 202403, end: 2024
  2. PROACTIV MD ADAPALENE ACNE TREATMENT [Suspect]
     Active Substance: ADAPALENE
     Dosage: 1 DOSAGE FORM, QD
     Route: 061
     Dates: start: 2024, end: 20240417
  3. Proactiv MD Ultra Gentle Cleanser [Concomitant]
     Indication: Acne
     Dosage: 1 DOSAGE FORM, BID
     Route: 061
     Dates: start: 202403, end: 2024
  4. Proactiv MD Ultra Gentle Cleanser [Concomitant]
     Dosage: 1 DOSAGE FORM, BID
     Route: 061
     Dates: start: 2024, end: 20240417
  5. COSMETICS [Concomitant]
     Active Substance: COSMETICS
     Indication: Acne
     Dosage: 1 DOSAGE FORM, BID
     Route: 061
     Dates: start: 202403, end: 2024
  6. COSMETICS [Concomitant]
     Active Substance: COSMETICS
     Dosage: 1 DOSAGE FORM, BID
     Route: 061
     Dates: start: 2024, end: 20240417
  7. COSMETICS [Concomitant]
     Active Substance: COSMETICS
     Indication: Acne
     Dosage: 1 DOSAGE FORM, BID
     Route: 061
     Dates: start: 202403, end: 2024
  8. COSMETICS [Concomitant]
     Active Substance: COSMETICS
     Dosage: 1 DOSAGE FORM, BID
     Route: 061
     Dates: start: 2024, end: 20240417
  9. COSMETICS [Concomitant]
     Active Substance: COSMETICS
     Indication: Acne
     Dosage: 1 DOSAGE FORM, BID
     Route: 061
     Dates: start: 202403, end: 2024
  10. COSMETICS [Concomitant]
     Active Substance: COSMETICS
     Dosage: 1 DOSAGE FORM, BID
     Route: 061
     Dates: start: 2024, end: 20240417
  11. Proactiv Zits Happen Patches [Concomitant]
     Indication: Acne
     Dosage: 1 DOSAGE FORM, BID
     Route: 061
     Dates: start: 202403, end: 2024
  12. Proactiv Zits Happen Patches [Concomitant]
     Dosage: 1 DOSAGE FORM, BID
     Route: 061
     Dates: start: 2024, end: 20240417

REACTIONS (4)
  - Skin irritation [Recovering/Resolving]
  - Erythema [Recovering/Resolving]
  - Skin burning sensation [Recovering/Resolving]
  - Dry skin [Recovering/Resolving]

NARRATIVE: CASE EVENT DATE: 20240301
